FAERS Safety Report 5824346-5 (Version None)
Quarter: 2008Q3

REPORT INFORMATION
  Report Type: 
  Country: None (occurrence: None)
  Receive Date: 20080728
  Receipt Date: 20080207
  Transmission Date: 20090109
  Serious: No
  Sender: FDA-Public Use
  Company Number: US-BAYER-200810620BCC

PATIENT
  Age: 79 Year
  Sex: Female
  Weight: 81 kg

DRUGS (5)
  1. ALEVE (CAPLET) [Suspect]
     Indication: ARTHRALGIA
     Dosage: TOTAL DAILY DOSE: 220 MG  UNIT DOSE: 220 MG
     Route: 048
     Dates: start: 20080206
  2. CITRACAL +D [Concomitant]
  3. FOSAMAX [Concomitant]
  4. CENTRUM SILVER [Concomitant]
  5. TOPROL-XL [Concomitant]

REACTIONS (1)
  - ARTHRALGIA [None]
